FAERS Safety Report 24705270 (Version 1)
Quarter: 2024Q4

REPORT INFORMATION
  Report Type: Spontaneous
  Country: ES (occurrence: ES)
  Receive Date: 20241206
  Receipt Date: 20241206
  Transmission Date: 20250115
  Serious: Yes (Hospitalization)
  Sender: ALEXION PHARMACEUTICALS
  Company Number: None

PATIENT
  Age: 80 Year

DRUGS (21)
  1. DAPAGLIFLOZIN [Suspect]
     Active Substance: DAPAGLIFLOZIN
     Dosage: 100 MILLIGRAM, QD
  2. DAPAGLIFLOZIN [Suspect]
     Active Substance: DAPAGLIFLOZIN
     Dosage: 100 MILLIGRAM, QD
  3. DAPAGLIFLOZIN [Suspect]
     Active Substance: DAPAGLIFLOZIN
     Dosage: 100 MILLIGRAM, QD
  4. DAPAGLIFLOZIN [Suspect]
     Active Substance: DAPAGLIFLOZIN
     Dosage: 100 MILLIGRAM, QD
  5. ACETAMINOPHEN\TRAMADOL HYDROCHLORIDE [Suspect]
     Active Substance: ACETAMINOPHEN\TRAMADOL HYDROCHLORIDE
     Indication: Arthralgia
  6. ACETAMINOPHEN\TRAMADOL HYDROCHLORIDE [Suspect]
     Active Substance: ACETAMINOPHEN\TRAMADOL HYDROCHLORIDE
  7. RAMIPRIL [Concomitant]
     Active Substance: RAMIPRIL
  8. RAMIPRIL [Concomitant]
     Active Substance: RAMIPRIL
  9. SIMVASTATIN [Concomitant]
     Active Substance: SIMVASTATIN
  10. SIMVASTATIN [Concomitant]
     Active Substance: SIMVASTATIN
  11. LORMETAZEPAM [Concomitant]
     Active Substance: LORMETAZEPAM
  12. LORMETAZEPAM [Concomitant]
     Active Substance: LORMETAZEPAM
  13. BRINTELLIX [Concomitant]
     Active Substance: VORTIOXETINE HYDROBROMIDE
  14. BRINTELLIX [Concomitant]
     Active Substance: VORTIOXETINE HYDROBROMIDE
  15. CALCIFEDIOL [Concomitant]
     Active Substance: CALCIFEDIOL
  16. CALCIFEDIOL [Concomitant]
     Active Substance: CALCIFEDIOL
  17. LORAZEPAM [Concomitant]
     Active Substance: LORAZEPAM
  18. LORAZEPAM [Concomitant]
     Active Substance: LORAZEPAM
  19. Clovate [Concomitant]
  20. BISOPROLOL FUMARATE [Concomitant]
     Active Substance: BISOPROLOL FUMARATE
     Dosage: 1.25 MILLIGRAM, Q12H
  21. BISOPROLOL FUMARATE [Concomitant]
     Active Substance: BISOPROLOL FUMARATE
     Dosage: 1.25 MILLIGRAM, Q12H

REACTIONS (2)
  - Constipation [Recovered/Resolved]
  - Condition aggravated [Recovered/Resolved]
